FAERS Safety Report 11898938 (Version 1)
Quarter: 2016Q1

REPORT INFORMATION
  Report Type: Spontaneous
  Country: US (occurrence: None)
  Receive Date: 20160107
  Receipt Date: 20160107
  Transmission Date: 20160526
  Serious: Yes (Other)
  Sender: FDA-Public Use
  Company Number: None

PATIENT
  Age: 8 Year
  Sex: Male
  Weight: 29.94 kg

DRUGS (1)
  1. METHYLPHENIDATE 36MG [Suspect]
     Active Substance: METHYLPHENIDATE
     Route: 048
     Dates: start: 20131214, end: 20140102

REACTIONS (1)
  - Aggression [None]

NARRATIVE: CASE EVENT DATE: 20131214
